FAERS Safety Report 8008644-5 (Version None)
Quarter: 2011Q4

REPORT INFORMATION
  Report Type: 
  Country: None (occurrence: None)
  Receive Date: 20111227
  Receipt Date: 20111215
  Transmission Date: 20120403
  Serious: Yes (Other)
  Sender: FDA-Public Use
  Company Number: US-ROCHE-802635

PATIENT
  Sex: Female
  Weight: 59.02 kg

DRUGS (3)
  1. ACCUTANE [Suspect]
  2. ACCUTANE [Suspect]
  3. ACCUTANE [Suspect]
     Indication: ACNE CYSTIC

REACTIONS (13)
  - INFLAMMATORY BOWEL DISEASE [None]
  - COLITIS ULCERATIVE [None]
  - MYALGIA [None]
  - DEPRESSION [None]
  - FIBROCYSTIC BREAST DISEASE [None]
  - RASH [None]
  - OVARIAN CYST [None]
  - IRRITABLE BOWEL SYNDROME [None]
  - ALOPECIA [None]
  - MOOD ALTERED [None]
  - GASTROOESOPHAGEAL REFLUX DISEASE [None]
  - CHEILITIS [None]
  - DRY SKIN [None]
